FAERS Safety Report 6743090-3 (Version None)
Quarter: 2010Q2

REPORT INFORMATION
  Report Type: 
  Country: None (occurrence: None)
  Receive Date: 20100527
  Receipt Date: 20100519
  Transmission Date: 20101027
  Serious: Yes (Other)
  Sender: FDA-Public Use
  Company Number: US-JNJFOC-20100508545

PATIENT
  Age: 30 Year
  Sex: Female
  Weight: 64.41 kg

DRUGS (4)
  1. TOPAMAX [Suspect]
     Indication: MIGRAINE PROPHYLAXIS
     Route: 048
  2. AMERGE [Concomitant]
     Indication: ABORTION
     Route: 048
  3. VICOPROFEN [Concomitant]
     Indication: ABORTION
     Route: 048
  4. VICOPROFEN [Concomitant]
     Route: 048

REACTIONS (1)
  - PCO2 DECREASED [None]
